FAERS Safety Report 14455029 (Version 2)
Quarter: 2018Q2

REPORT INFORMATION
  Report Type: Spontaneous
  Country: US (occurrence: US)
  Receive Date: 20180129
  Receipt Date: 20180509
  Transmission Date: 20180711
  Serious: Yes (Other)
  Sender: FDA-Public Use
  Company Number: US-DSJP-DSU-2017-143237

PATIENT

DRUGS (2)
  1. BENICAR HCT [Suspect]
     Active Substance: HYDROCHLOROTHIAZIDE\OLMESARTAN MEDOXOMIL
     Indication: ESSENTIAL HYPERTENSION
     Dosage: 20/12.5MG, QD
     Dates: start: 20051205, end: 20140519
  2. BENICAR [Suspect]
     Active Substance: OLMESARTAN MEDOXOMIL
     Indication: ESSENTIAL HYPERTENSION
     Dosage: 20 MG, UNK
     Dates: start: 20051205, end: 20140519

REACTIONS (4)
  - Rectal haemorrhage [Unknown]
  - Renal failure [Unknown]
  - Sprue-like enteropathy [Unknown]
  - Pancreatitis [Unknown]

NARRATIVE: CASE EVENT DATE: 20060214
